FAERS Safety Report 11891636 (Version 1)
Quarter: 2016Q1

REPORT INFORMATION
  Report Type: Spontaneous
  Country: AU (occurrence: AU)
  Receive Date: 20160106
  Receipt Date: 20160106
  Transmission Date: 20160526
  Serious: Yes (Disabling, Other)
  Sender: FDA-Public Use
  Company Number: AU-MYLANLABS-2016M1000480

PATIENT

DRUGS (4)
  1. INSULIN [Concomitant]
     Active Substance: INSULIN NOS
     Indication: PRODUCT USED FOR UNKNOWN INDICATION
  2. GABAPENTIN. [Concomitant]
     Active Substance: GABAPENTIN
     Indication: PRODUCT USED FOR UNKNOWN INDICATION
  3. PAXAM 2 [Suspect]
     Active Substance: CLONAZEPAM
     Indication: STIFF PERSON SYNDROME
  4. ARTHREXIN [Suspect]
     Active Substance: INDOMETHACIN
     Indication: STIFF PERSON SYNDROME

REACTIONS (4)
  - Drug dispensing error [Unknown]
  - Condition aggravated [Recovering/Resolving]
  - Product packaging issue [Unknown]
  - Stiff person syndrome [Recovering/Resolving]

NARRATIVE: CASE EVENT DATE: 20160104
